FAERS Safety Report 6839309-0 (Version None)
Quarter: 2010Q3

REPORT INFORMATION
  Report Type: 
  Country: None (occurrence: None)
  Receive Date: 20100714
  Receipt Date: 20100630
  Transmission Date: 20110219
  Serious: Yes (Hospitalization)
  Sender: FDA-Public Use
  Company Number: PHHY2010FR43336

PATIENT
  Sex: Female

DRUGS (7)
  1. GLEEVEC [Suspect]
     Indication: CHRONIC MYELOID LEUKAEMIA
     Dosage: UNK
     Route: 048
     Dates: end: 20100428
  2. TAREG [Suspect]
     Indication: HYPERTENSION
     Dosage: 80 MG/DAY
     Route: 048
     Dates: end: 20100428
  3. ALLOPURINOL [Suspect]
     Indication: GOUT
     Dosage: UNK
     Dates: end: 20100428
  4. FUROSEMIDE [Concomitant]
     Indication: HYPERTENSION
     Dosage: UNK
  5. CARDENSIEL [Concomitant]
     Indication: HYPERTENSION
     Dosage: UNK
  6. RANITIDINE [Concomitant]
     Dosage: UNK
  7. ZOPICLONE [Concomitant]
     Dosage: UNK

REACTIONS (3)
  - ANAEMIA MACROCYTIC [None]
  - RENAL FAILURE ACUTE [None]
  - SWELLING FACE [None]
